FAERS Safety Report 20479832 (Version 1)
Quarter: 2022Q1

REPORT INFORMATION
  Report Type: Spontaneous
  Country: US (occurrence: None)
  Receive Date: 20220215
  Receipt Date: 20220215
  Transmission Date: 20220423
  Serious: No
  Sender: FDA-Public Use
  Company Number: None

PATIENT
  Sex: Male

DRUGS (12)
  1. LETAIRIS [Suspect]
     Active Substance: AMBRISENTAN
     Indication: Pulmonary arterial hypertension
     Dosage: FREQUENCY : DAILY;?
     Route: 048
  2. Potassium/Magnesium Apar [Concomitant]
  3. CALCIUM\VITAMIN D [Concomitant]
     Active Substance: CALCIUM\VITAMIN D
  4. POTASSIUM CHLORIDE [Concomitant]
     Active Substance: POTASSIUM CHLORIDE
  5. ELIQUIS [Concomitant]
     Active Substance: APIXABAN
  6. WARFARIN [Concomitant]
     Active Substance: WARFARIN
  7. LOSARTAN [Concomitant]
     Active Substance: LOSARTAN
  8. REVATIO [Concomitant]
     Active Substance: SILDENAFIL CITRATE
  9. CARVEDILOL [Concomitant]
     Active Substance: CARVEDILOL
  10. SOTALOL [Concomitant]
     Active Substance: SOTALOL
  11. SILDENAFIL [Concomitant]
     Active Substance: SILDENAFIL
  12. LASIX [Concomitant]
     Active Substance: FUROSEMIDE

REACTIONS (2)
  - Product availability issue [None]
  - Symptom recurrence [None]
